FAERS Safety Report 7633464-0 (Version None)
Quarter: 2011Q3

REPORT INFORMATION
  Report Type: 
  Country: None (occurrence: None)
  Receive Date: 20110725
  Receipt Date: 20110324
  Transmission Date: 20111222
  Serious: Yes (Hospitalization)
  Sender: FDA-Public Use
  Company Number: US-BRISTOL-MYERS SQUIBB COMPANY-15592843

PATIENT
  Age: 74 Year
  Sex: Female

DRUGS (2)
  1. GLEEVEC [Concomitant]
  2. SPRYCEL [Suspect]
     Indication: CHRONIC MYELOID LEUKAEMIA
     Dosage: THERAPY DURATION 2 WEEKS
     Route: 048
     Dates: start: 20110208

REACTIONS (4)
  - PULMONARY OEDEMA [None]
  - CARDIAC FAILURE CONGESTIVE [None]
  - FLUID OVERLOAD [None]
  - HYPOXIA [None]
